FAERS Safety Report 12965000 (Version 1)
Quarter: 2016Q4

REPORT INFORMATION
  Report Type: Spontaneous
  Country: None (occurrence: US)
  Receive Date: 20161122
  Receipt Date: 20161122
  Transmission Date: 20170207
  Serious: No
  Sender: FDA-Public Use
  Company Number: US-ALLERGAN-1665061US

PATIENT
  Age: 33 Year
  Sex: Male
  Weight: 86.17 kg

DRUGS (1)
  1. KYBELLA [Suspect]
     Active Substance: DEOXYCHOLIC ACID
     Indication: FAT TISSUE INCREASED
     Dosage: 4 ML, SINGLE
     Route: 058
     Dates: start: 20160509, end: 20160509

REACTIONS (2)
  - Injection site scar [Not Recovered/Not Resolved]
  - Application site alopecia [Not Recovered/Not Resolved]

NARRATIVE: CASE EVENT DATE: 20160727
